FAERS Safety Report 8574778-X (Version None)
Quarter: 2012Q3

REPORT INFORMATION
  Report Type: 
  Country: None (occurrence: None)
  Receive Date: 20120807
  Receipt Date: 20120719
  Transmission Date: 20120928
  Serious: No
  Sender: FDA-Public Use
  Company Number: US-009507513-1207USA008475

PATIENT

DRUGS (1)
  1. VICTRELIS [Suspect]
     Indication: HEPATITIS C

REACTIONS (3)
  - INFLUENZA LIKE ILLNESS [None]
  - DEPRESSION [None]
  - MYALGIA [None]
